FAERS Safety Report 6308610-1 (Version None)
Quarter: 2009Q3

REPORT INFORMATION
  Report Type: 
  Country: None (occurrence: None)
  Receive Date: 20090813
  Receipt Date: 20090810
  Transmission Date: 20100115
  Serious: No
  Sender: FDA-Public Use
  Company Number: US-B.I. PHARMACEUTICALS,INC./RIDGEFIELD-2009-BP-09491BP

PATIENT
  Sex: Female

DRUGS (4)
  1. SPIRIVA [Suspect]
     Indication: ASTHMA
     Dosage: 18 MCG
     Route: 055
     Dates: start: 20090701
  2. GLUCOSAMINE [Concomitant]
     Indication: BONE DISORDER
  3. CHONDROITIN [Concomitant]
     Indication: BONE DISORDER
  4. CALCIUM [Concomitant]
     Indication: BONE DISORDER

REACTIONS (4)
  - CONSTIPATION [None]
  - DRY MOUTH [None]
  - DYSURIA [None]
  - SWOLLEN TONGUE [None]
